FAERS Safety Report 8906307 (Version 1)
Quarter: 2012Q4

REPORT INFORMATION
  Report Type: Spontaneous
  Country: GB (occurrence: None)
  Receive Date: 20121107
  Receipt Date: 20121107
  Transmission Date: 20130627
  Serious: Yes (Other)
  Sender: FDA-Public Use
  Company Number: AUR-APL-2012-04591

PATIENT
  Sex: Female
  Weight: 57.1 kg

DRUGS (1)
  1. MIRTAZAPINE [Suspect]
     Indication: DEPRESSED MOOD
     Dates: start: 20120625, end: 20120927

REACTIONS (1)
  - Angioedema [None]
